FAERS Safety Report 8461969-1 (Version None)
Quarter: 2012Q2

REPORT INFORMATION
  Report Type: 
  Country: None (occurrence: None)
  Receive Date: 20120625
  Receipt Date: 20120618
  Transmission Date: 20120825
  Serious: Yes (Hospitalization, Other)
  Sender: FDA-Public Use
  Company Number: US-BAYER-2011-006846

PATIENT
  Age: 18 Year
  Sex: Female
  Weight: 56.689 kg

DRUGS (5)
  1. IBUPROFEN [Concomitant]
     Indication: HEADACHE
     Dosage: UNK UNK, PRN
     Dates: start: 20060901
  2. ACETAMINOPHEN [Concomitant]
     Indication: HEADACHE
     Dosage: UNK UNK, PRN
     Dates: start: 20060901
  3. YAZ [Suspect]
     Dosage: UNK
     Dates: start: 20060601, end: 20060901
  4. NAPROXEN SODIUM AND PSEUDOEPHEDRINE HYDROCHLORIDE [Concomitant]
     Dosage: UNK
     Dates: start: 20050301, end: 20060801
  5. HYDROCODONE [Concomitant]
     Indication: PAIN
     Dosage: UNK UNK, Q4HR
     Dates: start: 20060801

REACTIONS (5)
  - THROMBOSIS [None]
  - ANXIETY [None]
  - DEEP VEIN THROMBOSIS [None]
  - PAIN [None]
  - EMOTIONAL DISTRESS [None]
